FAERS Safety Report 24691883 (Version 2)
Quarter: 2024Q4

REPORT INFORMATION
  Report Type: Spontaneous
  Country: FR (occurrence: FR)
  Receive Date: 20241203
  Receipt Date: 20241218
  Transmission Date: 20250115
  Serious: Yes (Other)
  Sender: ALEXION PHARMACEUTICALS
  Company Number: FR-SA-2024SA347340

PATIENT
  Age: 4 Month
  Weight: 7.6 kg

DRUGS (9)
  1. NIRSEVIMAB [Suspect]
     Active Substance: NIRSEVIMAB
     Dosage: UNK
     Route: 065
  2. NIRSEVIMAB [Suspect]
     Active Substance: NIRSEVIMAB
     Dosage: UNK
     Route: 065
  3. NIRSEVIMAB [Suspect]
     Active Substance: NIRSEVIMAB
     Dosage: UNK
     Route: 065
  4. NIRSEVIMAB [Suspect]
     Active Substance: NIRSEVIMAB
     Dosage: UNK
     Route: 065
  5. ROTARIX [Concomitant]
     Active Substance: HUMAN ROTAVIRUS A TYPE G1P(8) STRAIN RIX4414 LIVE ANTIGEN
     Indication: Immunisation
     Dosage: UNK
  6. ROTARIX [Concomitant]
     Active Substance: HUMAN ROTAVIRUS A TYPE G1P(8) STRAIN RIX4414 LIVE ANTIGEN
     Dosage: UNK
  7. VAXNEUVANCE [Concomitant]
     Active Substance: CORYNEBACTERIUM DIPHTHERIAE CRM197 PROTEIN\STREPTOCOCCUS PNEUMONIAE TYPE 1 CAPSULAR POLYSACCHARIDE D
     Indication: Immunisation
     Dosage: UNK
  8. BEXSERO [Concomitant]
     Active Substance: NEISSERIA MENINGITIDIS GROUP B FHBP FUSION PROTEIN ANTIGEN\NEISSERIA MENINGITIDIS GROUP B NADA PROTE
     Indication: Immunisation
     Dosage: UNK
  9. HEXYON [Concomitant]
     Active Substance: DIPHTHERIA AND TETANUS TOXOIDS AND ACELLULAR PERTUSSIS ADSORBED, INACTIVATED POLIOVIRUS AND HAEMOPHI
     Indication: Immunisation
     Dosage: UNK

REACTIONS (1)
  - Respiratory syncytial virus bronchiolitis [Recovered/Resolved with Sequelae]
